FAERS Safety Report 5061712-2 (Version None)
Quarter: 2006Q3

REPORT INFORMATION
  Report Type: 
  Country: None (occurrence: None)
  Receive Date: 20060726
  Receipt Date: 20060724
  Transmission Date: 20061208
  Serious: Yes (Hospitalization, Other)
  Sender: FDA-Public Use
  Company Number: US-RB-3627-2006

PATIENT
  Sex: Male

DRUGS (4)
  1. SUBOXONE [Suspect]
     Indication: DRUG DEPENDENCE
     Route: 060
     Dates: start: 20040420, end: 20060513
  2. SUBOXONE [Suspect]
     Route: 060
     Dates: start: 20060515
  3. GABAPENTIN [Concomitant]
     Dosage: AT TIME OF EVENT
     Route: 048
  4. AMITRIPTYLINE HYDROCHLORIDE [Concomitant]
     Dosage: AT TIME OF EVENT
     Route: 048

REACTIONS (2)
  - COORDINATION ABNORMAL [None]
  - LOSS OF CONSCIOUSNESS [None]
